FAERS Safety Report 20633419 (Version 1)
Quarter: 2022Q1

REPORT INFORMATION
  Report Type: Spontaneous
  Country: TR (occurrence: None)
  Receive Date: 20220324
  Receipt Date: 20220324
  Transmission Date: 20220423
  Serious: Yes (Hospitalization)
  Sender: FDA-Public Use
  Company Number: TR-Unichem Pharmaceuticals (USA) Inc-UCM202203-000295

PATIENT
  Age: 76 Year
  Sex: Male

DRUGS (5)
  1. PRAMIPEXOLE DIHYDROCHLORIDE [Suspect]
     Active Substance: PRAMIPEXOLE DIHYDROCHLORIDE
     Indication: Restless legs syndrome
  2. PRAMIPEXOLE DIHYDROCHLORIDE [Suspect]
     Active Substance: PRAMIPEXOLE DIHYDROCHLORIDE
     Indication: Pain in extremity
  3. METFORMIN [Concomitant]
     Active Substance: METFORMIN HYDROCHLORIDE
     Indication: Diabetes mellitus
  4. Lercadipine [Concomitant]
     Indication: Product used for unknown indication
  5. DOXAZOSIN [Concomitant]
     Active Substance: DOXAZOSIN MESYLATE
     Indication: Product used for unknown indication

REACTIONS (2)
  - Atrioventricular block [Recovering/Resolving]
  - Drug ineffective for unapproved indication [Unknown]
